FAERS Safety Report 9779602 (Version 1)
Quarter: 2013Q4

REPORT INFORMATION
  Report Type: Spontaneous
  Country: US (occurrence: US)
  Receive Date: 20131223
  Receipt Date: 20131223
  Transmission Date: 20140711
  Serious: No
  Sender: FDA-Public Use
  Company Number: US-PFIZER INC-2013363820

PATIENT
  Sex: Female

DRUGS (2)
  1. LYRICA [Suspect]
     Dosage: UNK
  2. AMITRIPTYLINE [Suspect]
     Dosage: 50 MG, UNK

REACTIONS (1)
  - Complex regional pain syndrome [Unknown]
